FAERS Safety Report 8336779-6 (Version None)
Quarter: 2012Q2

REPORT INFORMATION
  Report Type: 
  Country: None (occurrence: None)
  Receive Date: 20120501
  Receipt Date: 20120419
  Transmission Date: 20120825
  Serious: Yes (Life-Threatening, Other)
  Sender: FDA-Public Use
  Company Number: MC201200264

PATIENT
  Sex: Male

DRUGS (1)
  1. ANGIOMAX [Suspect]
     Indication: PERCUTANEOUS CORONARY INTERVENTION
     Dates: start: 20120401

REACTIONS (2)
  - CARDIO-RESPIRATORY ARREST [None]
  - THROMBOSIS IN DEVICE [None]
